FAERS Safety Report 13883952 (Version 2)
Quarter: 2017Q4

REPORT INFORMATION
  Report Type: Report from Study
  Country: US (occurrence: US)
  Receive Date: 20170820
  Receipt Date: 20171003
  Transmission Date: 20180320
  Serious: Yes (Hospitalization, Other)
  Sender: FDA-Public Use
  Company Number: US-MYLANLABS-2017M1049514

PATIENT
  Age: 15 Year
  Sex: Male
  Weight: 45 kg

DRUGS (7)
  1. CYTOXAN [Suspect]
     Active Substance: CYCLOPHOSPHAMIDE
     Dosage: 6240 MG, UNK
     Route: 042
     Dates: start: 20050210, end: 200504
  2. MELPHALAN. [Suspect]
     Active Substance: MELPHALAN
     Indication: NEUROBLASTOMA
     Dosage: 120 MG, BID
     Route: 042
     Dates: start: 20051109, end: 20051111
  3. IOBENGUANE (123 I) [Suspect]
     Active Substance: IOBENGUANE I-123
     Indication: NEUROBLASTOMA
     Dosage: 134 MCI, UNK
     Dates: start: 20051025
  4. IFOSFAMIDE INJECTION [Suspect]
     Active Substance: IFOSFAMIDE
     Indication: NEUROBLASTOMA
     Dosage: 6240 MG, TOTAL
     Route: 042
     Dates: start: 20051227, end: 20051230
  5. CRIZOTINIB [Suspect]
     Active Substance: CRIZOTINIB
     Indication: NEUROBLASTOMA
     Dosage: UNK, BID
     Route: 048
     Dates: start: 20100118, end: 20170612
  6. CYTOXAN [Suspect]
     Active Substance: CYCLOPHOSPHAMIDE
     Indication: NEUROBLASTOMA
     Dosage: 13104 MG, UNK
     Route: 042
     Dates: start: 20041227, end: 20041230
  7. IOBENGUANE (123 I) [Suspect]
     Active Substance: IOBENGUANE I-123
     Dosage: 432 MCI, UNK
     Dates: start: 20090501

REACTIONS (2)
  - Osteosarcoma [Not Recovered/Not Resolved]
  - Second primary malignancy [Not Recovered/Not Resolved]

NARRATIVE: CASE EVENT DATE: 20170619
